FAERS Safety Report 8560552-7 (Version None)
Quarter: 2012Q3

REPORT INFORMATION
  Report Type: 
  Country: None (occurrence: None)
  Receive Date: 20120802
  Receipt Date: 20120726
  Transmission Date: 20120928
  Serious: Yes (Hospitalization)
  Sender: FDA-Public Use
  Company Number: IT-B.I. PHARMACEUTICALS,INC./RIDGEFIELD-2012-IT-00173IT

PATIENT
  Sex: Female

DRUGS (8)
  1. DILTIAZEM HCL [Concomitant]
     Dosage: 180 MG
     Route: 048
  2. ALLOPURINOL [Concomitant]
     Route: 048
  3. SPIRIVA [Suspect]
     Indication: CHRONIC OBSTRUCTIVE PULMONARY DISEASE
     Dosage: 18 MCG
     Route: 055
     Dates: start: 20120217, end: 20120312
  4. FLUTICASONE PROPIONATE/SALMETEROL [Suspect]
     Indication: ASTHMA
     Dosage: 550 MCG
     Route: 055
     Dates: start: 20120217, end: 20120312
  5. PLAVIX [Concomitant]
     Dosage: 75 MG
     Route: 048
  6. UNIPRIL [Concomitant]
     Dosage: 2.5 MG
     Route: 048
  7. SIMVASTATIN [Concomitant]
     Route: 048
  8. LASIX [Concomitant]
     Dosage: 25 MG
     Route: 048

REACTIONS (6)
  - PYREXIA [None]
  - DRY MOUTH [None]
  - DYSPHAGIA [None]
  - DROP ATTACKS [None]
  - ERYTHEMA [None]
  - PRURITUS [None]
